FAERS Safety Report 4921457-3 (Version None)
Quarter: 2006Q1

REPORT INFORMATION
  Report Type: 
  Country: None (occurrence: None)
  Receive Date: 20060224
  Receipt Date: 20060213
  Transmission Date: 20060701
  Serious: Yes (Hospitalization)
  Sender: FDA-Public Use
  Company Number: US-BRISTOL-MYERS SQUIBB COMPANY-13283783

PATIENT
  Age: 68 Year
  Sex: Female

DRUGS (14)
  1. CETUXIMAB [Suspect]
     Indication: NON-SMALL CELL LUNG CANCER
     Dosage: THERAPY START DATE 24-JAN-06 (350 MG).
     Route: 042
     Dates: start: 20060207, end: 20060207
  2. CARBOPLATIN [Suspect]
     Indication: NON-SMALL CELL LUNG CANCER
     Dosage: COURSE 1.
     Route: 042
     Dates: start: 20060131, end: 20060131
  3. TAXOL [Suspect]
     Indication: NON-SMALL CELL LUNG CANCER
     Route: 042
     Dates: start: 20060207, end: 20060207
  4. TOPROL-XL [Concomitant]
     Indication: HYPERTENSION
     Route: 048
     Dates: start: 20040101, end: 20060113
  5. DIOVAN [Concomitant]
     Indication: HYPERTENSION
     Route: 048
     Dates: start: 20040101, end: 20060113
  6. SYNTHROID [Concomitant]
     Indication: HYPOTHYROIDISM
     Route: 048
     Dates: start: 20050130
  7. CENTRUM [Concomitant]
     Indication: ROUTINE HEALTH MAINTENANCE
     Dosage: DOSAGE FORM = 1 TABLET
     Route: 048
     Dates: start: 20050101
  8. K-DUR 10 [Concomitant]
     Indication: MINERAL SUPPLEMENTATION
     Route: 048
     Dates: start: 20051206, end: 20060113
  9. KEPPRA [Concomitant]
     Indication: METASTASES TO CENTRAL NERVOUS SYSTEM
     Route: 048
     Dates: start: 20051129
  10. METOPROLOL [Concomitant]
     Indication: HYPERTENSION
     Route: 048
     Dates: start: 20040101, end: 20060124
  11. MEGACE ES [Concomitant]
     Indication: ANOREXIA
     Dosage: MEGACE ES; 625 MG/5 ML
     Route: 048
     Dates: start: 20060113
  12. EPOGEN [Concomitant]
     Indication: ANAEMIA
     Dosage: 40,000 UNITS EVERY WEEK
     Route: 058
     Dates: start: 20060131
  13. CHROMAGEN FORTE TABS [Concomitant]
     Indication: ANAEMIA
     Route: 048
     Dates: start: 20060131
  14. IMODIUM [Concomitant]
     Route: 048
     Dates: start: 20060208

REACTIONS (2)
  - MENTAL STATUS CHANGES [None]
  - PNEUMONIA [None]
